FAERS Safety Report 24239359 (Version 2)
Quarter: 2024Q4

REPORT INFORMATION
  Report Type: Spontaneous
  Country: DE (occurrence: DE)
  Receive Date: 20240822
  Receipt Date: 20241029
  Transmission Date: 20250114
  Serious: Yes (Other)
  Sender: ROCHE
  Company Number: DE-ROCHE-10000062688

PATIENT
  Age: 35 Year
  Sex: Female
  Weight: 94 kg

DRUGS (2)
  1. KADCYLA [Suspect]
     Active Substance: ADO-TRASTUZUMAB EMTANSINE
     Indication: Breast cancer metastatic
     Dosage: LAST ADMINISTRATION ON 31/JUL
     Route: 042
     Dates: start: 20230503, end: 20240731
  2. KADCYLA [Suspect]
     Active Substance: ADO-TRASTUZUMAB EMTANSINE
     Dosage: LAST ADMINISTRATION ON 31/JUL
     Route: 065

REACTIONS (1)
  - Metastases to central nervous system [Unknown]
